FAERS Safety Report 5212045-2 (Version None)
Quarter: 2007Q1

REPORT INFORMATION
  Report Type: 
  Country: None (occurrence: None)
  Receive Date: 20070118
  Receipt Date: 20070110
  Transmission Date: 20070707
  Serious: Yes (Disabling, Other)
  Sender: FDA-Public Use
  Company Number: FR-ELI_LILLY_AND_COMPANY-FR200701001723

PATIENT
  Age: 60 Year
  Sex: Female

DRUGS (4)
  1. GEMZAR [Suspect]
     Indication: PANCREATIC CARCINOMA
     Dosage: 1500 MG, OTHER
     Route: 042
     Dates: start: 20061113
  2. SOLU-MEDROL [Concomitant]
     Indication: PREMEDICATION
     Dosage: 60 MG, DAILY (1/D)
     Route: 065
     Dates: start: 20061113
  3. ZOFRAN [Concomitant]
     Indication: PREMEDICATION
     Dosage: 8 MG, DAILY (1/D)
     Route: 065
  4. DIAMICRON                               /NET/ [Concomitant]
     Indication: DIABETES MELLITUS
     Route: 065

REACTIONS (3)
  - MICROANGIOPATHY [None]
  - NECROSIS [None]
  - RAYNAUD'S PHENOMENON [None]
